FAERS Safety Report 23095013 (Version 1)
Quarter: 2023Q4

REPORT INFORMATION
  Report Type: Spontaneous
  Country: DE (occurrence: DE)
  Receive Date: 20231023
  Receipt Date: 20231023
  Transmission Date: 20240110
  Serious: Yes (Other)
  Sender: FDA-Public Use
  Company Number: DE-BRISTOL-MYERS SQUIBB COMPANY-2023-112555

PATIENT
  Age: 86 Year
  Sex: Female
  Weight: 59 kg

DRUGS (1)
  1. ELIQUIS [Suspect]
     Active Substance: APIXABAN
     Indication: Cerebrovascular accident prophylaxis

REACTIONS (4)
  - Haematoma [Not Recovered/Not Resolved]
  - Impaired healing [Not Recovered/Not Resolved]
  - Skin atrophy [Not Recovered/Not Resolved]
  - Wound complication [Not Recovered/Not Resolved]

NARRATIVE: CASE EVENT DATE: 20230101
